FAERS Safety Report 11472032 (Version 2)
Quarter: 2015Q3

REPORT INFORMATION
  Report Type: Spontaneous
  Country: US (occurrence: None)
  Receive Date: 20150908
  Receipt Date: 20150925
  Transmission Date: 20151125
  Serious: No
  Sender: FDA-Public Use
  Company Number: US-MDT-ADR-2015-01729

PATIENT
  Age: 46 Year
  Sex: Male

DRUGS (1)
  1. BACLOFEN INTRATHECAL UNK [Suspect]
     Active Substance: BACLOFEN
     Dosage: UNK

REACTIONS (3)
  - Musculoskeletal disorder [None]
  - Somnolence [None]
  - Dizziness [None]
